FAERS Safety Report 14579872 (Version 2)
Quarter: 2018Q1

REPORT INFORMATION
  Report Type: Report from Study
  Country: None (occurrence: DE)
  Receive Date: 20180228
  Receipt Date: 20180330
  Transmission Date: 20180509
  Serious: Yes (Other)
  Sender: FDA-Public Use
  Company Number: DE-ABBVIE-18K-062-2268314-00

PATIENT
  Age: 41 Year
  Sex: Female
  Weight: 100 kg

DRUGS (2)
  1. HUMIRA [Suspect]
     Active Substance: ADALIMUMAB
     Indication: PSORIASIS
     Route: 058
     Dates: start: 2010, end: 201704
  2. MTX [Concomitant]
     Active Substance: METHOTREXATE SODIUM
     Indication: PRODUCT USED FOR UNKNOWN INDICATION
     Dates: start: 20170726

REACTIONS (5)
  - Subacute cutaneous lupus erythematosus [Recovered/Resolved]
  - Polymorphic light eruption [Recovered/Resolved]
  - Drug ineffective [Unknown]
  - Dermatitis [Recovered/Resolved]
  - Erythema multiforme [Recovered/Resolved]

NARRATIVE: CASE EVENT DATE: 201704
